FAERS Safety Report 8833386 (Version 1)
Quarter: 2012Q4

REPORT INFORMATION
  Report Type: 
  Country: FR (occurrence: FR)
  Receive Date: 20121010
  Receipt Date: 20121010
  Transmission Date: 20130627
  Serious: Yes (Hospitalization)
  Sender: FDA-Public Use
  Company Number: FR-PFIZER INC-2012246979

PATIENT
  Age: 56 Year
  Sex: Male

DRUGS (7)
  1. VFEND [Suspect]
     Indication: ASPERGILLOSIS
     Dosage: 200 mg, 2x/day
     Route: 048
     Dates: start: 20120511, end: 20120705
  2. VFEND [Suspect]
     Dosage: 250 mg, 2x/day
     Dates: start: 20120706, end: 20120903
  3. AERIUS [Concomitant]
     Dosage: 5 mg, daily
     Route: 048
     Dates: start: 20120511
  4. IMOVANE [Concomitant]
     Dosage: 3.75 mg, daily
     Route: 048
     Dates: start: 20120511
  5. TRIMEBUTINE [Concomitant]
     Dosage: UNK
     Route: 048
     Dates: start: 20120511, end: 20120903
  6. COLOFOAM [Concomitant]
     Dosage: UNK
     Route: 054
     Dates: start: 20120511, end: 20120903
  7. AMBISONE [Concomitant]
     Dosage: 200 mg, daily
     Route: 042
     Dates: start: 20120524, end: 20120706

REACTIONS (2)
  - Photosensitivity reaction [Recovering/Resolving]
  - Cholestasis [Recovering/Resolving]
